FAERS Safety Report 13740930 (Version 1)
Quarter: 2017Q3

REPORT INFORMATION
  Report Type: Spontaneous
  Country: PL (occurrence: PL)
  Receive Date: 20170711
  Receipt Date: 20170711
  Transmission Date: 20171127
  Serious: Yes (Other)
  Sender: FDA-Public Use
  Company Number: PL-BAXTER-2017BAX025424

PATIENT
  Age: 1 Month
  Sex: Male
  Weight: 2.5 kg

DRUGS (7)
  1. CALCIUM GLUCONATE. [Suspect]
     Active Substance: CALCIUM GLUCONATE
     Indication: PRODUCT USED FOR UNKNOWN INDICATION
     Dosage: INFUSION VOLUME: 1 ML (FLOW RATE: 8 ML/H)
     Route: 041
     Dates: start: 20170115, end: 20170115
  2. VANCOMYCIN MIP [Suspect]
     Active Substance: VANCOMYCIN HYDROCHLORIDE
     Indication: PRODUCT USED FOR UNKNOWN INDICATION
     Dosage: 60 MINUTES INFUSION
     Route: 041
     Dates: start: 20170115, end: 20170115
  3. MAGNESII SULFURICI [Suspect]
     Active Substance: MAGNESIUM SULFATE
     Indication: PRODUCT USED FOR UNKNOWN INDICATION
     Dosage: INFUSION FLOW RATE: 8 ML/H
     Route: 041
     Dates: start: 20170115, end: 20170115
  4. ROZTW?R GLUKOZY 5% BAXTER [Suspect]
     Active Substance: DEXTROSE
     Indication: MEDICATION DILUTION
     Dosage: 60 MINUTES INFUSION
     Route: 041
     Dates: start: 20170115, end: 20170115
  5. KCL [Suspect]
     Active Substance: POTASSIUM CHLORIDE
     Indication: PRODUCT USED FOR UNKNOWN INDICATION
     Dosage: INFUSION VOLUME: 3 ML (FLOW RATE: 8 ML/H)
     Route: 041
     Dates: start: 20170115, end: 20170115
  6. ROZTW?R GLUKOZY 10% BAXTER [Suspect]
     Active Substance: DEXTROSE
     Indication: PRODUCT USED FOR UNKNOWN INDICATION
     Dosage: VOLUME: 250 ML (FLOW RATE: 8 ML/H)
     Route: 041
     Dates: start: 20170115, end: 20170115
  7. NATRII CHLORATI [Suspect]
     Active Substance: SODIUM CHLORIDE
     Indication: PRODUCT USED FOR UNKNOWN INDICATION
     Dosage: INFUSION FLOW RATE: 8 ML/H
     Route: 041
     Dates: start: 20170115, end: 20170115

REACTIONS (2)
  - Macule [Recovering/Resolving]
  - Infusion site erythema [Recovering/Resolving]

NARRATIVE: CASE EVENT DATE: 20170115
